FAERS Safety Report 14556433 (Version 2)
Quarter: 2018Q1

REPORT INFORMATION
  Report Type: Spontaneous
  Country: US (occurrence: US)
  Receive Date: 20180221
  Receipt Date: 20180321
  Transmission Date: 20180509
  Serious: No
  Sender: FDA-Public Use
  Company Number: US-TEVA-2018-US-860603

PATIENT
  Sex: Male

DRUGS (1)
  1. CLONAZEPAM. [Suspect]
     Active Substance: CLONAZEPAM
     Indication: PANIC ATTACK
     Dates: start: 201802

REACTIONS (8)
  - Wrong technique in product usage process [Unknown]
  - Product taste abnormal [Unknown]
  - Panic attack [Unknown]
  - Product quality issue [Unknown]
  - Feeling cold [Unknown]
  - Fear [Unknown]
  - Confusional state [Unknown]
  - Product physical issue [Unknown]
